FAERS Safety Report 9288480 (Version 1)
Quarter: 2013Q2

REPORT INFORMATION
  Report Type: Spontaneous
  Country: GB (occurrence: GB)
  Receive Date: 20130514
  Receipt Date: 20130514
  Transmission Date: 20140414
  Serious: Yes (Hospitalization)
  Sender: FDA-Public Use
  Company Number: PHHY2013GB047110

PATIENT
  Age: 32 Year
  Sex: Male

DRUGS (3)
  1. WARFARIN [Suspect]
  2. CEFUROXIME [Concomitant]
  3. METRONIDAZOLE [Concomitant]

REACTIONS (8)
  - Neuralgia [Recovering/Resolving]
  - Areflexia [Recovering/Resolving]
  - Sensory loss [Recovering/Resolving]
  - Paraesthesia [Recovering/Resolving]
  - Muscle haemorrhage [Recovering/Resolving]
  - Abdominal pain [Recovering/Resolving]
  - Abdominal tenderness [Recovering/Resolving]
  - Pain in extremity [Recovering/Resolving]
